FAERS Safety Report 25217853 (Version 1)
Quarter: 2025Q2

REPORT INFORMATION
  Report Type: Spontaneous
  Country: US (occurrence: US)
  Receive Date: 20250421
  Receipt Date: 20250421
  Transmission Date: 20250716
  Serious: No
  Sender: SANOFI AVENTIS
  Company Number: US-SA-2025SA112406

PATIENT
  Sex: Male

DRUGS (13)
  1. DUPIXENT [Suspect]
     Active Substance: DUPILUMAB
     Indication: Dermatitis atopic
     Dosage: 300 MG, QOW
     Route: 058
     Dates: start: 20230127
  2. ACZONE [Concomitant]
     Active Substance: DAPSONE
  3. CLOBETASOL [Concomitant]
     Active Substance: CLOBETASOL
  4. DAPSONE [Concomitant]
     Active Substance: DAPSONE
  5. FLUOCINONIDE [Concomitant]
     Active Substance: FLUOCINONIDE
  6. A-HYDROCORT [Concomitant]
     Active Substance: HYDROCORTISONE SODIUM SUCCINATE
  7. OXYCODONE [Concomitant]
     Active Substance: OXYCODONE
  8. TACROLIMUS [Concomitant]
     Active Substance: TACROLIMUS
  9. TRETINOIN [Concomitant]
     Active Substance: TRETINOIN
  10. TRIAMCINOLONE [Concomitant]
     Active Substance: TRIAMCINOLONE
  11. WINLEVI [Concomitant]
     Active Substance: CLASCOTERONE
  12. A-HYDROCORT [Concomitant]
     Active Substance: HYDROCORTISONE SODIUM SUCCINATE
  13. TRIAMCINOLONE [Concomitant]
     Active Substance: TRIAMCINOLONE

REACTIONS (3)
  - Sleep disorder due to a general medical condition [Not Recovered/Not Resolved]
  - Dry eye [Not Recovered/Not Resolved]
  - Drug ineffective [Unknown]
